FAERS Safety Report 5840804-1 (Version None)
Quarter: 2008Q3

REPORT INFORMATION
  Report Type: 
  Country: None (occurrence: None)
  Receive Date: 20080811
  Receipt Date: 20080716
  Transmission Date: 20090109
  Serious: No
  Sender: FDA-Public Use
  Company Number: US-BOEHRINGER INGELHEIM GMBH, GERMANY-2008-BP-11267BP

PATIENT
  Age: 51 Year
  Sex: Male

DRUGS (1)
  1. MIRAPEX [Suspect]
     Indication: RESTLESS LEGS SYNDROME
     Route: 048
     Dates: start: 20040201, end: 20080401

REACTIONS (7)
  - ABNORMAL BEHAVIOUR [None]
  - DEPRESSION [None]
  - DISSOCIATIVE FUGUE [None]
  - DRUG WITHDRAWAL SYNDROME [None]
  - INSOMNIA [None]
  - OBSESSIVE-COMPULSIVE DISORDER [None]
  - SUICIDAL IDEATION [None]
